FAERS Safety Report 10158018 (Version 1)
Quarter: 2014Q2

REPORT INFORMATION
  Report Type: Spontaneous
  Country: FR (occurrence: FR)
  Receive Date: 20140507
  Receipt Date: 20140507
  Transmission Date: 20141212
  Serious: Yes (Other)
  Sender: FDA-Public Use
  Company Number: FR-ASTRAZENECA-2014SE29661

PATIENT
  Age: 965 Month
  Sex: Male

DRUGS (4)
  1. MOPRAL [Suspect]
     Indication: GASTROOESOPHAGEAL REFLUX DISEASE
     Route: 048
     Dates: start: 2012
  2. MOPRAL [Suspect]
     Indication: GASTROOESOPHAGEAL REFLUX DISEASE
     Route: 048
  3. IMODIUM [Concomitant]
     Indication: GASTROINTESTINAL DISORDER
  4. STILNOX [Concomitant]

REACTIONS (1)
  - Pneumonia [Recovered/Resolved]
